FAERS Safety Report 7019218-7 (Version None)
Quarter: 2010Q3

REPORT INFORMATION
  Report Type: 
  Country: None (occurrence: None)
  Receive Date: 20100928
  Receipt Date: 20100920
  Transmission Date: 20110219
  Serious: Yes (Other)
  Sender: FDA-Public Use
  Company Number: FI-AMGEN-QUU377713

PATIENT
  Sex: Female

DRUGS (1)
  1. ARANESP [Suspect]
     Indication: RENAL FAILURE CHRONIC
     Dates: start: 20091007

REACTIONS (4)
  - BONE MARROW FAILURE [None]
  - EOSINOPHILIA [None]
  - RASH [None]
  - THERAPEUTIC RESPONSE DECREASED [None]
